FAERS Safety Report 20944880 (Version 1)
Quarter: 2022Q2

REPORT INFORMATION
  Report Type: Spontaneous
  Country: CN (occurrence: CN)
  Receive Date: 20220610
  Receipt Date: 20220610
  Transmission Date: 20220721
  Serious: Yes (Other)
  Sender: FDA-Public Use
  Company Number: CN-Merck Healthcare KGaA-9326533

PATIENT
  Age: 70 Year
  Sex: Male
  Weight: 45 kg

DRUGS (3)
  1. ERBITUX [Suspect]
     Active Substance: CETUXIMAB
     Indication: Laryngeal cancer
     Dosage: 560 MG, DAILY (ALONG WITH 0.9 % SODIUM CHLORIDE INJECTION 500ML)
     Route: 041
     Dates: start: 20220518, end: 20220518
  2. CISPLATIN [Suspect]
     Active Substance: CISPLATIN
     Indication: Laryngeal cancer
     Dosage: 30 MG, DAILY (ALONG WITH 0.9 % SODIUM CHLORIDE INJECTION 500ML)
     Route: 041
     Dates: start: 20220518, end: 20220518
  3. FLUOROURACIL [Suspect]
     Active Substance: FLUOROURACIL
     Indication: Laryngeal cancer
     Dosage: 1.25 MG, DAILY (ALONG WITH 0.9 % SODIUM CHLORIDE INJECTION 500 ML)
     Route: 041
     Dates: start: 20220518, end: 20220518

REACTIONS (4)
  - Tachypnoea [Recovering/Resolving]
  - Chest discomfort [Recovering/Resolving]
  - Hyperhidrosis [Recovering/Resolving]
  - Nausea [Recovering/Resolving]

NARRATIVE: CASE EVENT DATE: 20220519
